FAERS Safety Report 20418635 (Version 1)
Quarter: 2022Q1

REPORT INFORMATION
  Report Type: Spontaneous
  Country: US (occurrence: US)
  Receive Date: 20220202
  Receipt Date: 20220202
  Transmission Date: 20220423
  Serious: No
  Sender: FDA-Public Use
  Company Number: US-SA-SAC20220129000187

PATIENT
  Sex: Female

DRUGS (15)
  1. DUPIXENT [Suspect]
     Active Substance: DUPILUMAB
     Indication: Asthma
     Dosage: 300 MG, QOW
     Route: 058
     Dates: start: 20210721
  2. ALBUTEROL SULFATE [Concomitant]
     Active Substance: ALBUTEROL SULFATE
  3. DULERA [Concomitant]
     Active Substance: FORMOTEROL FUMARATE DIHYDRATE\MOMETASONE FUROATE
  4. IPRATROPIUM [Concomitant]
     Active Substance: IPRATROPIUM
  5. MONTELUKAST SODIUM [Concomitant]
     Active Substance: MONTELUKAST SODIUM
  6. OMEPRAZOLE [Concomitant]
     Active Substance: OMEPRAZOLE
  7. ORILISSA [Concomitant]
     Active Substance: ELAGOLIX SODIUM
  8. PREDNISONE [Concomitant]
     Active Substance: PREDNISONE
  9. SPIRIVA [Concomitant]
     Active Substance: TIOTROPIUM BROMIDE MONOHYDRATE
  10. SUMATRIPTAN [Concomitant]
     Active Substance: SUMATRIPTAN
  11. TYLENOL [Concomitant]
     Active Substance: ACETAMINOPHEN
  12. VENTOLIN HFA [Concomitant]
     Active Substance: ALBUTEROL SULFATE
  13. DESLORATADINE [Concomitant]
     Active Substance: DESLORATADINE
  14. VITAMINS NOS [Concomitant]
     Active Substance: VITAMINS
  15. PREGABALIN [Concomitant]
     Active Substance: PREGABALIN

REACTIONS (1)
  - Wheezing [Unknown]
